FAERS Safety Report 6486957-6 (Version None)
Quarter: 2009Q4

REPORT INFORMATION
  Report Type: 
  Country: None (occurrence: None)
  Receive Date: 20091210
  Receipt Date: 20091201
  Transmission Date: 20100525
  Serious: Yes (Hospitalization, Other)
  Sender: FDA-Public Use
  Company Number: PHHY2009JP49144

PATIENT
  Sex: Female
  Weight: 55 kg

DRUGS (12)
  1. DIOVAN [Suspect]
     Indication: HYPERTENSION
     Dosage: 40 MG, QD
     Route: 048
     Dates: start: 20071227, end: 20090215
  2. THIAMAZOLE [Concomitant]
     Indication: BASEDOW'S DISEASE
     Dosage: 10 MG, UNK
     Route: 048
     Dates: start: 20071227
  3. RISEDRONATE SODIUM [Concomitant]
     Indication: OSTEOPOROSIS
     Dosage: 2.5 MG, UNK
     Route: 048
     Dates: start: 20071227, end: 20090215
  4. PSYCHOTHERAPY [Concomitant]
     Indication: DEPRESSION
  5. INSULIN GLARGINE [Concomitant]
     Indication: TYPE 1 DIABETES MELLITUS
     Dosage: UNK
     Route: 058
     Dates: start: 20071227
  6. ROHYPNOL [Concomitant]
     Dosage: UNK
     Route: 048
  7. LORAZEPAM [Concomitant]
     Dosage: UNK
     Route: 048
  8. ABILIFY [Concomitant]
     Dosage: UNK
     Route: 048
  9. RESLIN [Concomitant]
     Dosage: UNK
     Route: 048
  10. LUVOX [Concomitant]
     Dosage: UNK
     Route: 048
  11. TASMOLIN [Concomitant]
     Indication: TYPE 1 DIABETES MELLITUS
     Dosage: UNK
     Route: 048
  12. NOVORAPID [Concomitant]
     Route: 058

REACTIONS (5)
  - BLOOD GLUCOSE FLUCTUATION [None]
  - CAESAREAN SECTION [None]
  - DRUG EXPOSURE DURING PREGNANCY [None]
  - HYPOGLYCAEMIA [None]
  - PREGNANCY INDUCED HYPERTENSION [None]
